FAERS Safety Report 5128542-4 (Version None)
Quarter: 2006Q4

REPORT INFORMATION
  Report Type: 
  Country: None (occurrence: None)
  Receive Date: 20061011
  Receipt Date: 20060920
  Transmission Date: 20070319
  Serious: Yes (Other)
  Sender: FDA-Public Use
  Company Number: CHPA2006US09621

PATIENT
  Age: 19 Year
  Sex: Female
  Weight: 45.4 kg

DRUGS (1)
  1. EXCEDRIN (MIGRAINE) [Suspect]
     Indication: MIGRAINE
     Dosage: 2 DF, 2-3 TIMES DAILY, ORAL
     Route: 048

REACTIONS (3)
  - DRUG ABUSER [None]
  - NO ADVERSE DRUG EFFECT [None]
  - OVERDOSE [None]
